FAERS Safety Report 6767739-4 (Version None)
Quarter: 2010Q2

REPORT INFORMATION
  Report Type: 
  Country: None (occurrence: None)
  Receive Date: 20100610
  Receipt Date: 20100603
  Transmission Date: 20101027
  Serious: Yes (Death)
  Sender: FDA-Public Use
  Company Number: 2010JP001806

PATIENT
  Age: 75 Year
  Sex: Male
  Weight: 50 kg

DRUGS (7)
  1. FUNGUARD (MICAFUNGIN) INJECTION [Suspect]
     Dosage: 100 MG /D, IV DRIP
     Route: 041
     Dates: start: 20100312, end: 20100323
  2. FULCALIQ (AMINO ACIDS NOS, CARBOHYDRATES NOS, ELECTROLYTES NOS, VITAMI [Concomitant]
  3. LASIX [Concomitant]
  4. DECADRON (PHENYLEPHRINE HYDROCLORIDE) [Concomitant]
  5. ELEMENMIC (POTASSIUM IODIDE, ZINC SULFATE) [Concomitant]
  6. AMIGRAND [Concomitant]
  7. CARBENIN (BETAMIPRON, PANIPENEM) [Concomitant]

REACTIONS (3)
  - BLOOD ALKALINE PHOSPHATASE INCREASED [None]
  - JAUNDICE [None]
  - LIVER DISORDER [None]
